FAERS Safety Report 8275015-6 (Version None)
Quarter: 2012Q1

REPORT INFORMATION
  Report Type: 
  Country: None (occurrence: None)
  Receive Date: 20120309
  Receipt Date: 20120202
  Transmission Date: 20120608
  Serious: No
  Sender: FDA-Public Use
  Company Number: TH-2012-00080

PATIENT
  Sex: Female

DRUGS (1)
  1. EGRIFTA [Suspect]
     Indication: LIPODYSTROPHY ACQUIRED
     Dosage: 1 IN 1 D, SUBCUTANEOUS
     Route: 058
     Dates: start: 20110417

REACTIONS (6)
  - INJECTION SITE SWELLING [None]
  - DIZZINESS [None]
  - INJECTION SITE ERYTHEMA [None]
  - VOMITING PROJECTILE [None]
  - MALAISE [None]
  - PRURITUS [None]
